FAERS Safety Report 4961103-6 (Version None)
Quarter: 2006Q1

REPORT INFORMATION
  Report Type: 
  Country: None (occurrence: None)
  Receive Date: 20060328
  Receipt Date: 20060317
  Transmission Date: 20060701
  Serious: Yes (Hospitalization, Other)
  Sender: FDA-Public Use
  Company Number: 200610122BWH

PATIENT
  Age: 47 Year
  Sex: Male
  Weight: 84 kg

DRUGS (13)
  1. SORAFENIB [Suspect]
     Indication: METASTATIC RENAL CELL CARCINOMA
     Dosage: 400 MG, BID, ORAL
     Route: 048
     Dates: start: 20051216, end: 20060103
  2. FENTANYL [Concomitant]
  3. OXYCODONE [Concomitant]
  4. CELEXA [Concomitant]
  5. PEPCID [Concomitant]
  6. DIAZEPAM [Concomitant]
  7. TYLENOL (CAPLET) [Concomitant]
  8. LYRICA [Concomitant]
  9. SENOKOT [Concomitant]
  10. LACTULOSE [Concomitant]
  11. ZOMETA [Concomitant]
  12. AVASTIN [Concomitant]
  13. INTERFERON [Concomitant]

REACTIONS (9)
  - BACK PAIN [None]
  - BLOOD BILIRUBIN INCREASED [None]
  - BLOOD SODIUM DECREASED [None]
  - CANCER PAIN [None]
  - HAEMOGLOBIN DECREASED [None]
  - HEADACHE [None]
  - MALIGNANT NEOPLASM PROGRESSION [None]
  - WOUND DEHISCENCE [None]
  - WOUND SECRETION [None]
